FAERS Safety Report 4723759-2 (Version None)
Quarter: 2005Q3

REPORT INFORMATION
  Report Type: 
  Country: None (occurrence: None)
  Receive Date: 20050720
  Receipt Date: 20050720
  Transmission Date: 20060218
  Serious: No
  Sender: FDA-Public Use
  Company Number: None

PATIENT
  Age: 49 Year
  Sex: Female
  Weight: 108.8633 kg

DRUGS (11)
  1. VICOPROFEN [Suspect]
     Indication: BACK PAIN
     Dosage: 1 PO QID
     Route: 048
     Dates: start: 20021219
  2. ZENAFLEX [Concomitant]
  3. NEURONTIN [Concomitant]
  4. MIGRANAL [Concomitant]
  5. PAXIL [Concomitant]
  6. LIPITOR [Concomitant]
  7. SYNTHROID [Concomitant]
  8. AMITRIPTYLINE HCL [Concomitant]
  9. DYAZIDE [Concomitant]
  10. KLONOPIN [Concomitant]
  11. TENORMIN [Concomitant]

REACTIONS (1)
  - BENIGN INTRACRANIAL HYPERTENSION [None]
